FAERS Safety Report 21303762 (Version 2)
Quarter: 2022Q3

REPORT INFORMATION
  Report Type: Report from Study
  Country: US (occurrence: US)
  Receive Date: 20220907
  Receipt Date: 20220913
  Transmission Date: 20221026
  Serious: Yes (Hospitalization, Other)
  Sender: FDA-Public Use
  Company Number: US-GILEAD-2022-0595067

PATIENT
  Age: 70 Year
  Sex: Female
  Weight: 65 kg

DRUGS (9)
  1. SACITUZUMAB GOVITECAN [Suspect]
     Active Substance: SACITUZUMAB GOVITECAN
     Indication: Endometrial cancer
     Dosage: 7.5 MG/KG, CYCLE DAYS 1 AND 8
     Route: 042
     Dates: start: 20210924, end: 20220811
  2. LASIX [Concomitant]
     Active Substance: FUROSEMIDE
  3. SYNTHROID [Concomitant]
     Active Substance: LEVOTHYROXINE SODIUM
  4. LIPITOR [Concomitant]
     Active Substance: ATORVASTATIN CALCIUM
  5. PLAVIX [Concomitant]
     Active Substance: CLOPIDOGREL BISULFATE
  6. LANOXIN [Concomitant]
     Active Substance: DIGOXIN
  7. LISINOPRIL [Concomitant]
     Active Substance: LISINOPRIL
  8. TOPROL XL [Concomitant]
     Active Substance: METOPROLOL SUCCINATE
  9. IMODIUM [Concomitant]
     Active Substance: LOPERAMIDE HYDROCHLORIDE

REACTIONS (2)
  - Acute myocardial infarction [Recovered/Resolved]
  - Ventricular tachycardia [Unknown]

NARRATIVE: CASE EVENT DATE: 20220816
